FAERS Safety Report 7752899-9 (Version None)
Quarter: 2011Q3

REPORT INFORMATION
  Report Type: 
  Country: None (occurrence: None)
  Receive Date: 20110915
  Receipt Date: 20110907
  Transmission Date: 20111222
  Serious: Yes (Other)
  Sender: FDA-Public Use
  Company Number: CA-JNJFOC-20110904153

PATIENT
  Sex: Female

DRUGS (4)
  1. IMURAN [Concomitant]
  2. REMICADE [Suspect]
     Route: 042
     Dates: start: 20080401
  3. ACTONEL [Concomitant]
  4. REMICADE [Suspect]
     Indication: CROHN'S DISEASE
     Route: 042
     Dates: start: 20110726

REACTIONS (2)
  - CLAVICLE FRACTURE [None]
  - SCAPULA FRACTURE [None]
